FAERS Safety Report 11734422 (Version 6)
Quarter: 2016Q3

REPORT INFORMATION
  Report Type: Spontaneous
  Country: US (occurrence: US)
  Receive Date: 20151113
  Receipt Date: 20160927
  Transmission Date: 20161109
  Serious: Yes (Congenital Anomaly, Other)
  Sender: FDA-Public Use
  Company Number: PHEH2015US023443

PATIENT
  Sex: Female

DRUGS (6)
  1. ONDANSETRONE RANBAXY [Suspect]
     Active Substance: ONDANSETRON HYDROCHLORIDE
     Indication: FOETAL EXPOSURE DURING PREGNANCY
     Dosage: MOTHER^S DOSE: 4 MG 1 TO 2 TIMES A DAY
     Route: 064
  2. ZOFRAN [Suspect]
     Active Substance: ONDANSETRON HYDROCHLORIDE
     Indication: FOETAL EXPOSURE DURING PREGNANCY
     Route: 064
  3. ONDANSETRON [Suspect]
     Active Substance: ONDANSETRON
     Indication: FOETAL EXPOSURE DURING PREGNANCY
     Dosage: MOTHER^S DOSE: 4 MG 1 TO 2 TIMES A DAY
     Route: 064
  4. ONDANSETRON DR REDDY [Suspect]
     Active Substance: ONDANSETRON
     Indication: FOETAL EXPOSURE DURING PREGNANCY
     Dosage: MOTHER^S DOSE: 4 MG 1 TO 2 TIMES A DAY
     Route: 064
  5. ONDANSETRON [Suspect]
     Active Substance: ONDANSETRON
     Indication: FOETAL EXPOSURE DURING PREGNANCY
     Dosage: MOTHER^S DOSE: 4 MG 1 TO 2 TIMES A DAY
     Route: 064
  6. ONDANSETRON AUROBINDO [Suspect]
     Active Substance: ONDANSETRON HYDROCHLORIDE
     Indication: FOETAL EXPOSURE DURING PREGNANCY
     Dosage: MOTHER^S DOSE: 4 MG 1 TO 2 TIMES A DAY
     Route: 064

REACTIONS (17)
  - Gastrooesophageal reflux disease [Unknown]
  - Renal failure [Unknown]
  - Pierre Robin syndrome [Unknown]
  - Congenital anomaly [Unknown]
  - Renal hypertension [Unknown]
  - Anxiety [Unknown]
  - Laryngomalacia [Unknown]
  - Anhedonia [Unknown]
  - Atrial septal defect [Unknown]
  - Foetal exposure during pregnancy [Unknown]
  - Pain [Unknown]
  - Injury [Unknown]
  - Multiple congenital abnormalities [Unknown]
  - Micrognathia [Unknown]
  - Hyperkalaemia [Unknown]
  - Cleft palate [Unknown]
  - Emotional distress [Unknown]
